FAERS Safety Report 6320284-2 (Version None)
Quarter: 2009Q3

REPORT INFORMATION
  Report Type: 
  Country: None (occurrence: None)
  Receive Date: 20090822
  Receipt Date: 20081029
  Transmission Date: 20100115
  Serious: No
  Sender: FDA-Public Use
  Company Number: US-ABBOTT-08P-163-0484750-00

PATIENT
  Sex: Female

DRUGS (3)
  1. NIASPAN [Suspect]
     Indication: BLOOD CHOLESTEROL INCREASED
     Dosage: AT NIGHT
     Route: 048
     Dates: start: 20081017, end: 20081021
  2. CADUET [Concomitant]
     Indication: DRUG USE FOR UNKNOWN INDICATION
     Dosage: 5-20 MILLIGRAMS DAILY
     Route: 048
  3. JANUMET [Concomitant]
     Indication: DRUG USE FOR UNKNOWN INDICATION
     Dosage: 50/500 MILLIGRAMS BID
     Route: 048

REACTIONS (3)
  - ERYTHEMA [None]
  - FLUSHING [None]
  - SKIN BURNING SENSATION [None]
